FAERS Safety Report 7703337-3 (Version None)
Quarter: 2011Q3

REPORT INFORMATION
  Report Type: 
  Country: None (occurrence: None)
  Receive Date: 20110823
  Receipt Date: 20110810
  Transmission Date: 20111222
  Serious: Yes (Hospitalization, Other)
  Sender: FDA-Public Use
  Company Number: DE-ELI_LILLY_AND_COMPANY-DE201108003139

PATIENT
  Age: 77 Year
  Sex: Female

DRUGS (3)
  1. THYREOTOM [Concomitant]
  2. FORTEO [Suspect]
     Indication: OSTEOPOROSIS
     Dosage: 20 UG, QD
     Dates: start: 20100801, end: 20110701
  3. METHOTREXATE [Concomitant]

REACTIONS (1)
  - MULTIPLE MYELOMA [None]
